FAERS Safety Report 26214688 (Version 1)
Quarter: 2025Q4

REPORT INFORMATION
  Report Type: Spontaneous
  Country: EU (occurrence: EU)
  Receive Date: 20251230
  Receipt Date: 20251230
  Transmission Date: 20260117
  Serious: Yes (Other)
  Sender: NOVARTIS
  Company Number: None

PATIENT
  Age: 34 Year
  Sex: Male

DRUGS (3)
  1. TEGRETOL [Suspect]
     Active Substance: CARBAMAZEPINE
     Indication: Product dispensing error
     Dosage: 1600 MG, ONCE/SINGLE (1 CP LE 27/11 ET 3 CP LE 28/11), SCORED FILM COATED
     Route: 048
     Dates: start: 20251127, end: 20251128
  2. TERALITHE [Suspect]
     Active Substance: LITHIUM CARBONATE
     Indication: Bipolar disorder
     Dosage: 1200 MG, QD (3 FOIS PAR JOUR)
     Route: 048
     Dates: start: 20251127, end: 20251128
  3. FLUOXETINE HYDROCHLORIDE [Concomitant]
     Active Substance: FLUOXETINE HYDROCHLORIDE
     Indication: Bipolar disorder
     Dosage: UNK
     Route: 048

REACTIONS (7)
  - Somnolence [Recovered/Resolved]
  - Vertigo [Recovered/Resolved]
  - Diplopia [Recovered/Resolved]
  - Paraesthesia [Recovered/Resolved]
  - Auditory disorder [Recovered/Resolved]
  - Product dispensing error [Recovered/Resolved]
  - Wrong product administered [Recovered/Resolved]

NARRATIVE: CASE EVENT DATE: 20251127
